FAERS Safety Report 5684413-6 (Version None)
Quarter: 2008Q1

REPORT INFORMATION
  Report Type: 
  Country: None (occurrence: None)
  Receive Date: 20080328
  Receipt Date: 20080325
  Transmission Date: 20080703
  Serious: Yes (Disabling)
  Sender: FDA-Public Use
  Company Number: US-BRISTOL-MYERS SQUIBB COMPANY-13959598

PATIENT
  Age: 37 Year
  Sex: Female
  Weight: 57 kg

DRUGS (2)
  1. SPRYCEL [Suspect]
     Indication: CHRONIC MYELOID LEUKAEMIA
     Dosage: STOPPED ON 14TH+15TH OCT07;RESUMED ON 16OCT07 WITH 70MG/DAY.THERAPY DURATION-3OF5 DAYS
     Route: 048
     Dates: start: 20071012, end: 20071016
  2. ASPIRIN [Concomitant]

REACTIONS (1)
  - MIGRAINE [None]
